FAERS Safety Report 5702389-X (Version None)
Quarter: 2008Q2

REPORT INFORMATION
  Report Type: 
  Country: None (occurrence: None)
  Receive Date: 20080411
  Receipt Date: 20080328
  Transmission Date: 20081010
  Serious: Yes (Hospitalization)
  Sender: FDA-Public Use
  Company Number: AT-ASTRAZENECA-2008SE01854

PATIENT
  Age: 41 Year
  Sex: Female
  Weight: 90 kg

DRUGS (4)
  1. BLOPRESS [Suspect]
     Indication: ESSENTIAL HYPERTENSION
     Route: 048
     Dates: start: 19980727, end: 19980928
  2. BLOPRESS [Suspect]
     Route: 048
     Dates: start: 19980929
  3. BLOPRESS [Suspect]
     Route: 048
     Dates: start: 19981102
  4. CYCLACUR [Concomitant]
     Dosage: ESTRADIOL VALERATE / NORGESTREL
     Route: 065

REACTIONS (2)
  - BLOOD PRESSURE INCREASED [None]
  - INTERVERTEBRAL DISC PROTRUSION [None]
